FAERS Safety Report 7221822-8 (Version None)
Quarter: 2011Q1

REPORT INFORMATION
  Report Type: 
  Country: None (occurrence: None)
  Receive Date: 20110112
  Receipt Date: 20101222
  Transmission Date: 20110831
  Serious: Yes (Hospitalization)
  Sender: FDA-Public Use
  Company Number: A0755213A

PATIENT
  Age: 62 Year
  Sex: Male
  Weight: 103.2 kg

DRUGS (7)
  1. AVANDIA [Suspect]
     Dosage: 8MG PER DAY
     Route: 048
     Dates: start: 20031122, end: 20070101
  2. LIPITOR [Concomitant]
     Dates: start: 20020101
  3. DIABETA [Concomitant]
     Dates: start: 20070329
  4. NAPROXEN [Concomitant]
  5. DIAZIDE [Concomitant]
  6. ATENOLOL [Concomitant]
     Dates: start: 19960101
  7. PROZAC [Concomitant]

REACTIONS (7)
  - ANGINA UNSTABLE [None]
  - MYOCARDIAL INFARCTION [None]
  - DEFORMITY [None]
  - CHEST PAIN [None]
  - PHYSICAL DISABILITY [None]
  - DYSPNOEA [None]
  - FATIGUE [None]
